FAERS Safety Report 12831974 (Version 1)
Quarter: 2016Q4

REPORT INFORMATION
  Report Type: Spontaneous
  Country: US (occurrence: US)
  Receive Date: 20161010
  Receipt Date: 20161010
  Transmission Date: 20170207
  Serious: Yes (Other)
  Sender: FDA-Public Use
  Company Number: US-009507513-1610USA002273

PATIENT
  Sex: Female
  Weight: 70.75 kg

DRUGS (1)
  1. NEXPLANON [Suspect]
     Active Substance: ETONOGESTREL
     Dosage: 1 DF, UNK
     Route: 062

REACTIONS (5)
  - Vaginal haemorrhage [Unknown]
  - Implant site pruritus [Not Recovered/Not Resolved]
  - Implant site bruising [Not Recovered/Not Resolved]
  - Implant site swelling [Not Recovered/Not Resolved]
  - Implant site pain [Not Recovered/Not Resolved]
